FAERS Safety Report 7125067-1 (Version None)
Quarter: 2010Q4

REPORT INFORMATION
  Report Type: 
  Country: None (occurrence: None)
  Receive Date: 20101129
  Receipt Date: 20101012
  Transmission Date: 20110411
  Serious: Yes (Life-Threatening, Hospitalization, Other)
  Sender: FDA-Public Use
  Company Number: US-AMGEN AB-QUU438952

PATIENT

DRUGS (13)
  1. NPLATE [Suspect]
     Indication: IDIOPATHIC THROMBOCYTOPENIC PURPURA
     Dosage: 10 A?G/KG, UNK
     Route: 058
     Dates: start: 20100223, end: 20100803
  2. NPLATE [Suspect]
  3. NPLATE [Suspect]
  4. NPLATE [Suspect]
  5. NPLATE [Suspect]
  6. NPLATE [Suspect]
  7. NPLATE [Suspect]
  8. NPLATE [Suspect]
  9. NPLATE [Suspect]
  10. NPLATE [Suspect]
  11. NPLATE [Suspect]
  12. NPLATE [Suspect]
  13. PREDNISONE [Concomitant]
     Dosage: 60 MG, UNK

REACTIONS (8)
  - CONVULSION [None]
  - HEADACHE [None]
  - INCREASED TENDENCY TO BRUISE [None]
  - OEDEMA PERIPHERAL [None]
  - PETECHIAE [None]
  - RASH MACULO-PAPULAR [None]
  - SUPERIOR SAGITTAL SINUS THROMBOSIS [None]
  - THROMBOCYTOPENIA [None]
